FAERS Safety Report 9622627 (Version 1)
Quarter: 2013Q4

REPORT INFORMATION
  Report Type: Spontaneous
  Country: US (occurrence: US)
  Receive Date: 20131015
  Receipt Date: 20131015
  Transmission Date: 20140711
  Serious: Yes (Hospitalization, Other)
  Sender: FDA-Public Use
  Company Number: US-PFIZER INC-2013293309

PATIENT
  Age: 70 Year
  Sex: Female
  Weight: 90.7 kg

DRUGS (4)
  1. LYRICA [Suspect]
     Indication: NERVE INJURY
     Dosage: 600 MG, DAILY (THREE CAPSULES OF 200MG EACH)
     Dates: start: 2013
  2. LYRICA [Suspect]
     Indication: OSTEOARTHRITIS
     Dosage: 400 MG, DAILY (TWO CAPSULES OF 200MG EACH),
     Dates: start: 2013
  3. LYRICA [Suspect]
     Indication: NECK PAIN
  4. CYMBALTA [Suspect]
     Indication: DEPRESSION
     Dosage: 200 MG, DAILY

REACTIONS (9)
  - Pneumonia [Unknown]
  - Weight increased [Unknown]
  - Drug ineffective [Unknown]
  - Fatigue [Unknown]
  - Somnolence [Unknown]
  - Pain [Unknown]
  - Blood cholesterol increased [Unknown]
  - Drug intolerance [Unknown]
  - Depression [Unknown]
